FAERS Safety Report 18501268 (Version 1)
Quarter: 2020Q4

REPORT INFORMATION
  Report Type: Spontaneous
  Country: US (occurrence: US)
  Receive Date: 20201113
  Receipt Date: 20201113
  Transmission Date: 20210114
  Serious: Yes (Hospitalization, Other)
  Sender: FDA-Public Use
  Company Number: US-PFIZER INC-2020437901

PATIENT
  Age: 24 Year
  Sex: Female
  Weight: 58 kg

DRUGS (8)
  1. ISOFLURANE. [Interacting]
     Active Substance: ISOFLURANE
     Dosage: UNK, RANGING FROM 0-2% INSPIRED CONCENTRATION
  2. OXYGEN. [Concomitant]
     Active Substance: OXYGEN
     Indication: MAINTENANCE OF ANAESTHESIA
     Dosage: UNK
  3. DROPERIDOL. [Suspect]
     Active Substance: DROPERIDOL
     Indication: PROPHYLAXIS OF NAUSEA AND VOMITING
     Dosage: 0.65 MG (LOW DOSE)
     Route: 042
  4. SUCCINYLCHOLINE CHLORIDE. [Concomitant]
     Active Substance: SUCCINYLCHOLINE CHLORIDE
     Dosage: 100 MG
     Route: 042
  5. IBUPROFEN. [Concomitant]
     Active Substance: IBUPROFEN
     Indication: ABDOMINAL PAIN
     Dosage: 400 MG
     Route: 048
  6. TUBOCURARINE. [Concomitant]
     Active Substance: TUBOCURARINE
     Dosage: 3 MG
     Route: 042
  7. NITROUS OXIDE. [Concomitant]
     Active Substance: NITROUS OXIDE
     Indication: MAINTENANCE OF ANAESTHESIA
     Dosage: UNK
  8. THIAMYLAL [Concomitant]
     Active Substance: THIAMYLAL
     Indication: INDUCTION OF ANAESTHESIA
     Dosage: 320 MG
     Route: 042

REACTIONS (4)
  - Drug interaction [Recovered/Resolved]
  - Dystonia [Recovered/Resolved]
  - Tongue spasm [Recovered/Resolved]
  - Muscle spasms [Recovered/Resolved]
